FAERS Safety Report 9844610 (Version 1)
Quarter: 2014Q1

REPORT INFORMATION
  Report Type: Spontaneous
  Country: US (occurrence: None)
  Receive Date: 20140122
  Receipt Date: 20140122
  Transmission Date: 20141002
  Serious: Yes (Other)
  Sender: FDA-Public Use
  Company Number: FK201400181

PATIENT
  Age: 52 Year
  Sex: Female

DRUGS (2)
  1. OXALIPLATIN [Suspect]
     Indication: COLORECTAL CANCER
  2. SEROTONIN (5-HT3) ANTAGONIST (SEROTONIN (5HT3) ANTAGONISTS) [Concomitant]

REACTIONS (6)
  - Anaphylactic reaction [None]
  - Wheezing [None]
  - Abdominal pain [None]
  - Dizziness [None]
  - Loss of consciousness [None]
  - Hypotension [None]
